FAERS Safety Report 15034246 (Version 1)
Quarter: 2018Q2

REPORT INFORMATION
  Report Type: Spontaneous
  Country: CH (occurrence: CH)
  Receive Date: 20180620
  Receipt Date: 20180620
  Transmission Date: 20180711
  Serious: Yes (Hospitalization)
  Sender: FDA-Public Use
  Company Number: CH-CONCORDIA PHARMACEUTICALS INC.-GSH201806-002040

PATIENT
  Age: 92 Year
  Sex: Female
  Weight: 47.6 kg

DRUGS (6)
  1. TORASEMIDE [Suspect]
     Active Substance: TORSEMIDE
     Route: 048
     Dates: end: 20180516
  2. ELIQUIS [Concomitant]
     Active Substance: APIXABAN
     Route: 048
  3. METOLAZONE. [Suspect]
     Active Substance: METOLAZONE
     Route: 048
     Dates: end: 20180516
  4. BISOPROLOL [Suspect]
     Active Substance: BISOPROLOL
     Route: 048
     Dates: end: 20180516
  5. DIGOXIN. [Suspect]
     Active Substance: DIGOXIN
     Route: 048
     Dates: end: 20180516
  6. AMLODIPIN-MEPHA 5 [Concomitant]

REACTIONS (3)
  - Chronic kidney disease [Recovering/Resolving]
  - Atrioventricular block complete [Recovered/Resolved]
  - Bradycardia [Recovered/Resolved]

NARRATIVE: CASE EVENT DATE: 20180516
